FAERS Safety Report 8577537-7 (Version None)
Quarter: 2012Q3

REPORT INFORMATION
  Report Type: 
  Country: None (occurrence: None)
  Receive Date: 20120807
  Receipt Date: 20120112
  Transmission Date: 20120928
  Serious: Yes (Hospitalization, Other)
  Sender: FDA-Public Use
  Company Number: US-ROCHE-1098186

PATIENT
  Sex: Male

DRUGS (4)
  1. XOLAIR [Suspect]
  2. ALBUTEROL [Concomitant]
  3. PREDNISONE [Concomitant]
  4. XOLAIR [Suspect]
     Indication: ASTHMA

REACTIONS (3)
  - LOWER RESPIRATORY TRACT INFECTION [None]
  - EMPHYSEMA [None]
  - DYSPNOEA [None]
